FAERS Safety Report 8610686-3 (Version None)
Quarter: 2012Q3

REPORT INFORMATION
  Report Type: 
  Country: None (occurrence: None)
  Receive Date: 20120822
  Receipt Date: 20120815
  Transmission Date: 20120928
  Serious: Yes (Other)
  Sender: FDA-Public Use
  Company Number: US-JNJFOC-20120808028

PATIENT
  Sex: Male

DRUGS (1)
  1. NUCYNTA ER [Suspect]
     Indication: PAIN
     Dosage: 2 IN ONE DAY
     Route: 048

REACTIONS (2)
  - INFECTION [None]
  - RENAL IMPAIRMENT [None]
